FAERS Safety Report 9799988 (Version 1)
Quarter: 2014Q1

REPORT INFORMATION
  Report Type: Spontaneous
  Country: US (occurrence: US)
  Receive Date: 20140106
  Receipt Date: 20140106
  Transmission Date: 20141002
  Serious: No
  Sender: FDA-Public Use
  Company Number: US-GILEAD-2010-0030499

PATIENT
  Age: 55 Year
  Sex: Male
  Weight: 79.83 kg

DRUGS (10)
  1. LETAIRIS [Suspect]
     Indication: PULMONARY ARTERIAL HYPERTENSION
     Route: 048
     Dates: start: 20080104
  2. ADCIRCA [Concomitant]
  3. ALDACTONE [Concomitant]
  4. LASIX [Concomitant]
  5. COUMADIN [Concomitant]
  6. REVATIO [Concomitant]
  7. RESTORIL [Concomitant]
  8. CELEXA [Concomitant]
  9. CALCIUM [Concomitant]
  10. OXYCONTIN [Concomitant]

REACTIONS (1)
  - Syncope [Unknown]
